FAERS Safety Report 8844178 (Version 1)
Quarter: 2012Q4

REPORT INFORMATION
  Report Type: 
  Country: US (occurrence: US)
  Receive Date: 20121016
  Receipt Date: 20121016
  Transmission Date: 20130627
  Serious: No
  Sender: FDA-Public Use
  Company Number: US-PFIZER INC-2012254948

PATIENT
  Age: 32 Year
  Sex: Female
  Weight: 54.42 kg

DRUGS (7)
  1. VISTARIL [Suspect]
     Indication: ANXIETY
     Dosage: 25 mg, as needed (up to three times in a day)
     Dates: start: 20121005, end: 20121007
  2. GABAPENTIN [Concomitant]
     Indication: FIBROMYALGIA
     Dosage: 400 mg, daily
  3. BACLOFEN [Concomitant]
     Indication: FIBROMYALGIA
     Dosage: 10 mg, daily
  4. LEVOTHYROXINE [Concomitant]
     Indication: HYPERTHYROIDISM
     Dosage: 100 ug, daily
  5. CYMBALTA [Concomitant]
     Indication: FIBROMYALGIA
     Dosage: 120 mg, daily
  6. CYMBALTA [Concomitant]
     Indication: DEPRESSION
  7. ETHINYLESTRADIOL/NORGESTIMATE [Concomitant]
     Indication: ENDOMETRIOSIS
     Dosage: UNK

REACTIONS (5)
  - Mydriasis [Not Recovered/Not Resolved]
  - Tremor [Not Recovered/Not Resolved]
  - Palpitations [Not Recovered/Not Resolved]
  - Extraocular muscle disorder [Unknown]
  - Bruxism [Unknown]
